FAERS Safety Report 4626031-4 (Version None)
Quarter: 2005Q1

REPORT INFORMATION
  Report Type: 
  Country: None (occurrence: None)
  Receive Date: 20050330
  Receipt Date: 20050315
  Transmission Date: 20050727
  Serious: Yes (Hospitalization)
  Sender: FDA-Public Use
  Company Number: 2005BI006040

PATIENT
  Sex: Female

DRUGS (2)
  1. AVONEX [Suspect]
     Indication: MULTIPLE SCLEROSIS
     Dosage: IM
     Route: 030
     Dates: start: 19970101, end: 20040101
  2. AVONEX [Suspect]
     Indication: MULTIPLE SCLEROSIS
     Dosage: IM
     Route: 030
     Dates: start: 20040101

REACTIONS (12)
  - BALANCE DISORDER [None]
  - BONE OPERATION [None]
  - CHEST PAIN [None]
  - COLITIS ISCHAEMIC [None]
  - CORONARY ARTERY OCCLUSION [None]
  - FALL [None]
  - HYPOLIPIDAEMIA [None]
  - INTERVERTEBRAL DISC PROTRUSION [None]
  - LOWER LIMB FRACTURE [None]
  - MUSCULOSKELETAL STIFFNESS [None]
  - NEURALGIA [None]
  - OESOPHAGEAL DISORDER [None]
